FAERS Safety Report 6555007-5 (Version None)
Quarter: 2010Q1

REPORT INFORMATION
  Report Type: 
  Country: None (occurrence: None)
  Receive Date: 20100126
  Receipt Date: 20100126
  Transmission Date: 20100710
  Serious: Yes (Hospitalization)
  Sender: FDA-Public Use
  Company Number: None

PATIENT
  Sex: Female
  Weight: 84.1 kg

DRUGS (3)
  1. CREST WHITENING RINSE, FRESH MINT FLAVOR LIQUID [Suspect]
     Indication: DENTAL DISORDER PROPHYLAXIS
     Dosage: 1 APPLICATION 1/DAY INTRAORAL
     Dates: start: 20090621, end: 20090622
  2. CRYSELLE [Concomitant]
  3. AMBIEN [Concomitant]

REACTIONS (19)
  - ANXIETY [None]
  - CAUSTIC INJURY [None]
  - DEHYDRATION [None]
  - EMOTIONAL DISTRESS [None]
  - GLOSSODYNIA [None]
  - HYPOPHAGIA [None]
  - LIP SWELLING [None]
  - ORAL DISCOMFORT [None]
  - ORAL PAIN [None]
  - OROPHARYNGEAL PAIN [None]
  - PARAESTHESIA ORAL [None]
  - SCAR [None]
  - SKIN ULCER [None]
  - STOMATITIS [None]
  - SWOLLEN TONGUE [None]
  - SYNCOPE [None]
  - THROAT IRRITATION [None]
  - TONGUE DISORDER [None]
  - TONGUE ULCERATION [None]
